FAERS Safety Report 24150913 (Version 1)
Quarter: 2024Q3

REPORT INFORMATION
  Report Type: Spontaneous
  Country: US (occurrence: None)
  Receive Date: 20240729
  Receipt Date: 20240729
  Transmission Date: 20241017
  Serious: Yes (Other)
  Sender: Public
  Company Number: None

PATIENT
  Age: 92 Year
  Sex: Female
  Weight: 72 kg

DRUGS (1)
  1. AMLODIPINE [Suspect]
     Active Substance: AMLODIPINE BESYLATE
     Dosage: OTHER QUANTITY : 1 TABLET(S);?
     Route: 048

REACTIONS (4)
  - Rash [None]
  - Urticaria [None]
  - Blister [None]
  - Pain of skin [None]

NARRATIVE: CASE EVENT DATE: 20240701
